FAERS Safety Report 4944627-7 (Version None)
Quarter: 2006Q1

REPORT INFORMATION
  Report Type: 
  Country: None (occurrence: None)
  Receive Date: 20060315
  Receipt Date: 20060314
  Transmission Date: 20060701
  Serious: Yes (Other)
  Sender: FDA-Public Use
  Company Number: US-GLAXOSMITHKLINE-A0597470A

PATIENT
  Age: 24 Year
  Sex: Female

DRUGS (1)
  1. TARGET NTS 21MG [Suspect]
     Dates: start: 20060314, end: 20060314

REACTIONS (4)
  - ANGINA PECTORIS [None]
  - CHEST PAIN [None]
  - FEELING HOT [None]
  - HEADACHE [None]
